FAERS Safety Report 7525099-5 (Version None)
Quarter: 2011Q2

REPORT INFORMATION
  Report Type: 
  Country: None (occurrence: None)
  Receive Date: 20110606
  Receipt Date: 20081009
  Transmission Date: 20111010
  Serious: Yes (Death, Hospitalization, Other)
  Sender: FDA-Public Use
  Company Number: US-BAYER-200835458NA

PATIENT
  Age: 80 Year
  Sex: Female
  Weight: 84 kg

DRUGS (77)
  1. NORVASC [Concomitant]
     Dosage: 5-10 MG, DAILY AS NEEDED
     Route: 048
     Dates: start: 20030728, end: 20060819
  2. NITROGLYCERIN [Concomitant]
     Dosage: DRIP, UNK
     Route: 042
     Dates: start: 20060820
  3. LOPRESSOR [Concomitant]
     Dosage: UNK
     Dates: start: 20060201
  4. LOVENOX [Concomitant]
     Dosage: 70-80 MG EVERY 12 HR
     Dates: start: 20060817
  5. ALPRAZOLAM [Concomitant]
     Dosage: 0.25 MG Q6HR AS NEEDED
     Route: 048
     Dates: start: 20060818
  6. CIPROFLOXACIN HCL [Concomitant]
     Dosage: 400 MG, BID
     Route: 042
     Dates: start: 20060818
  7. METHYLPREDNISOLONE [Concomitant]
     Dosage: 40-80 MG Q8HR
     Route: 042
     Dates: start: 20060820
  8. MAGNESIUM SULFATE [Concomitant]
     Dosage: 1 GM AS NEEDED
     Route: 042
     Dates: start: 20060820
  9. CALCIUM CHLORIDE [Concomitant]
     Dosage: 1 GM, UNK
     Dates: start: 20060821
  10. PROTAMINE SULFATE [Concomitant]
     Dosage: 250 MG, UNK
     Route: 042
     Dates: start: 20060821
  11. SODIUM BICARBONATE [Concomitant]
     Dosage: 50 MEQ, UNK
     Route: 042
     Dates: start: 20060821
  12. TRASYLOL [Suspect]
     Dosage: 50 CC/HOUR, UNK
     Route: 042
     Dates: start: 20060821, end: 20060821
  13. LIPITOR [Concomitant]
     Dosage: 20-80 MG, DAILY INTERMITTENT USE
     Route: 048
     Dates: start: 20031117
  14. ZOFRAN [Concomitant]
     Indication: NAUSEA
     Dosage: 4-8 MG, 4-6 HR AS NEEDED INTERMITTENT WITH ACUTE CARE
     Route: 042
     Dates: start: 20060301
  15. MEPERIDINE [Concomitant]
     Indication: PAIN
     Dosage: 25-75 MG EVERY 1-3 HR AS NEEDED INTERMITTENT WITH ACUTE CARE
     Route: 030
     Dates: start: 20060606, end: 20060821
  16. CEFAZOLIN [Concomitant]
     Dosage: 2 GM EVERY 8HR X 6 DOSES
     Route: 042
     Dates: start: 20060820, end: 20060823
  17. ALBUTEROL SULFATE AUTOHALER [Concomitant]
     Dosage: 0.5 ML UNIT DOSE, UNK
     Route: 055
     Dates: start: 20060820, end: 20060823
  18. MARCAINA C/EPINEFRINA [Concomitant]
     Dosage: 60 CC, UNK
     Dates: start: 20060821, end: 20060821
  19. PANCURONIUM [Concomitant]
     Dosage: 8 MG, UNK
     Route: 042
     Dates: start: 20060821, end: 20060821
  20. ISOFLURANE [Concomitant]
     Dosage: 1-1.6%, UNK
     Route: 055
     Dates: start: 20060821, end: 20060821
  21. DECADRON [Concomitant]
     Dosage: 38 MG, UNK
     Route: 042
     Dates: start: 20060821
  22. TRASYLOL [Suspect]
     Dosage: 200 CC BOLUS, UNK
     Route: 042
     Dates: start: 20060821, end: 20060821
  23. ACETAMINOPHEN [Concomitant]
     Dosage: 650 MG, Q4HR AS NEEDED
     Route: 048
     Dates: start: 20060219
  24. ZOFRAN [Concomitant]
     Indication: VOMITING
  25. REGLAN [Concomitant]
     Dosage: 10 MG, Q6HR, INTERMITTENT WITH ACUTE CARE
     Route: 042
     Dates: start: 20060606
  26. CEFAZOLIN [Concomitant]
     Dosage: 1 GM, UNK
     Route: 042
     Dates: start: 20060606, end: 20060606
  27. DARVOCET [Concomitant]
     Dosage: N-100, UNK
     Route: 048
     Dates: start: 20060607
  28. ZANTAC [Concomitant]
     Dosage: 150 MG, UNK
     Route: 048
     Dates: start: 20060817
  29. DOPAMINE HCL [Concomitant]
     Dosage: 2-3 MG, UNK
     Route: 042
     Dates: start: 20060818
  30. LOTREL [Concomitant]
     Dosage: UNK
     Dates: start: 20060818, end: 20060819
  31. HEPARIN [Concomitant]
     Dosage: 5000 UNITS BOLUS, THEN 1000 UNITS/HR; 8.1 UNITS/KG/HR DRIP
     Route: 042
     Dates: start: 20060820
  32. RED BLOOD CELLS [Concomitant]
     Dosage: 2 U, UNK
     Dates: start: 20060821
  33. BREVIBLOC [Concomitant]
     Dosage: 10 MG, UNK
     Route: 042
     Dates: start: 20060606, end: 20060606
  34. LORTAB [Concomitant]
     Dosage: 5/500 MG, Q4HR AS NEEDED
     Route: 048
     Dates: start: 20060817
  35. ASPIRIN [Concomitant]
     Dosage: 81-325 MG, QD
     Route: 048
     Dates: start: 20060819
  36. PANTOPRAZOLE [Concomitant]
     Dosage: 40 MG, QD
     Route: 048
     Dates: start: 20040130
  37. MORPHINE [Concomitant]
     Dosage: UNK
     Dates: start: 20060818
  38. NITROGLYCERIN [Concomitant]
     Dosage: 1 GM 2%, 1 INCH, Q6HR INTERMITTENT WITH ACUTE CARE
     Route: 061
     Dates: start: 20060228, end: 20060820
  39. LIDOCAINE [Concomitant]
     Dosage: 10 MG, UNK
     Route: 042
     Dates: start: 20060821
  40. ASCORBIC ACID [Concomitant]
     Dosage: 500 MG, UNK
     Route: 048
     Dates: start: 20060606
  41. FENTANYL [Concomitant]
     Dosage: 0.1 MG, UNK
     Route: 042
     Dates: start: 20060606, end: 20060606
  42. SINGULAIR [Concomitant]
     Dosage: 10 MG, HS
     Route: 048
     Dates: start: 20060613
  43. HEPARIN [Concomitant]
     Dosage: 10,000-30,000 UNITS, UNK
     Route: 042
     Dates: start: 20060820
  44. METHYLPREDNISOLONE [Concomitant]
     Dosage: 40 MG, UNK
     Route: 042
     Dates: start: 20060820
  45. SUFENTANIL CITRATE [Concomitant]
     Dosage: 20-30 MCG, UNK
     Route: 042
     Dates: start: 20060821
  46. ALBUMIN (HUMAN) [Concomitant]
     Dosage: 50 ML, UNK
     Route: 042
     Dates: start: 20060821
  47. PLATELETS [Concomitant]
     Dosage: 1 U, UNK
     Dates: start: 20060821
  48. MORPHINE [Concomitant]
     Indication: PAIN
     Dosage: 1-8  MG EVERY 1-3 HR AS NEEDED INTERMITTENT WITH ACUTE CARE
     Route: 042
     Dates: start: 20050501
  49. LIDOCAINE [Concomitant]
     Dosage: UNK
     Dates: start: 20060606, end: 20060606
  50. GLYCOPYRROLATE [Concomitant]
     Dosage: 0.2 MG, UNK
     Route: 042
     Dates: start: 20060606, end: 20060606
  51. EPHEDRINE [Concomitant]
     Dosage: 50 MG, UNK
     Route: 042
     Dates: start: 20060606, end: 20060606
  52. EPHEDRINE [Concomitant]
     Dosage: 2-15 MCG/MIN, UNK
     Route: 042
     Dates: start: 20060821, end: 20060821
  53. MEPERIDINE [Concomitant]
     Indication: CHILLS
  54. TORADOL [Concomitant]
     Indication: PAIN
     Dosage: 30 MG, UNK
     Route: 042
     Dates: start: 20060812, end: 20060822
  55. PLAVIX [Concomitant]
     Dosage: 150-300 MG, QD
     Route: 048
     Dates: start: 20060817
  56. ONDANSETRON [Concomitant]
     Dosage: 4 MG Q6HR AS NEEDED
     Route: 042
     Dates: start: 20060818
  57. LEVALBUTEROL HCL [Concomitant]
     Dosage: 1.25 MG UNIT DOSE, Q6HR
     Route: 055
     Dates: start: 20060819
  58. BUMETANIDE [Concomitant]
     Dosage: 3-4 MG, UNK
     Route: 042
     Dates: start: 20060819
  59. MIDAZOLAM [Concomitant]
     Dosage: 5-10 MG, UNK
     Route: 042
     Dates: start: 20060821
  60. PAPAVERINE [Concomitant]
     Dosage: 60 MG, UNK
     Route: 042
     Dates: start: 20060821
  61. MANNITOL [Concomitant]
     Dosage: 12.5 GM, UNK
     Route: 042
     Dates: start: 20060821
  62. VERSED [Concomitant]
     Dosage: 1-2 MG, UNK
     Route: 042
     Dates: start: 20060606, end: 20060606
  63. DIPRIVAN [Concomitant]
     Dosage: 10 MG, UNK
     Route: 042
     Dates: start: 20060606, end: 20060606
  64. EPHEDRINE [Concomitant]
     Dosage: 50 MG, UNK
     Dates: start: 20060821
  65. DILAUDID [Concomitant]
     Dosage: 2 MG, UNK
     Route: 042
     Dates: start: 20060606
  66. ATIVAN [Concomitant]
     Dosage: 1 MG, UNK
     Dates: start: 20060817, end: 20060817
  67. TRASYLOL [Suspect]
     Indication: CORONARY ARTERY BYPASS
     Dosage: 1 ML, UNK
     Route: 042
     Dates: start: 20060821, end: 20060821
  68. LEVAQUIN [Concomitant]
     Dosage: 500 MG, QD, INTERMITTENT WITH ACUTE CARE
     Dates: start: 20060519
  69. TRACRIUM [Concomitant]
     Dosage: 10 MG, UNK
     Route: 042
     Dates: start: 20060606, end: 20060606
  70. LABETALOL [Concomitant]
     Dosage: 100 MG, UNK
     Route: 042
     Dates: start: 20060606, end: 20060606
  71. AVELOX [Concomitant]
     Dosage: 400 MG, QD X 5 DAYS
     Route: 048
     Dates: start: 20060613, end: 20060617
  72. LOPRESSOR [Concomitant]
     Dosage: 5 MG, UNK
     Route: 042
     Dates: start: 20060817
  73. DOPAMINE HCL [Concomitant]
     Indication: SYSTOLIC HYPERTENSION
     Dosage: 3-20 MCG/KG/MINUTE DRIP, UNK
     Route: 042
     Dates: start: 20060818
  74. MUPIROCIN [Concomitant]
     Dosage: 0.9 GM EVERY 8 HOURS
     Route: 061
     Dates: start: 20060820, end: 20060822
  75. MAGNESIUM SULFATE [Concomitant]
     Dosage: 6 MEQ, UNK
     Route: 042
     Dates: start: 20060821
  76. ALBUMIN (HUMAN) [Concomitant]
     Dosage: 250 ML, UNK
     Dates: start: 20060821
  77. NEOSYNEPHRINE [Concomitant]
     Dosage: 20 MG, UNK
     Route: 042
     Dates: start: 20060821

REACTIONS (15)
  - ANXIETY [None]
  - FEAR [None]
  - RENAL FAILURE [None]
  - PAIN [None]
  - ANHEDONIA [None]
  - DEPRESSION [None]
  - UNEVALUABLE EVENT [None]
  - STRESS [None]
  - RENAL IMPAIRMENT [None]
  - EMOTIONAL DISTRESS [None]
  - DEFORMITY [None]
  - INJURY [None]
  - MENTAL DISORDER [None]
  - RENAL INJURY [None]
  - PSYCHIATRIC SYMPTOM [None]
